FAERS Safety Report 25964008 (Version 1)
Quarter: 2025Q4

REPORT INFORMATION
  Report Type: Spontaneous
  Country: US (occurrence: US)
  Receive Date: 20251027
  Receipt Date: 20251027
  Transmission Date: 20260118
  Serious: No
  Sender: BRISTOL-MYERS SQUIBB COMPANY
  Company Number: US-BRISTOL-MYERS SQUIBB COMPANY-2025-145848

PATIENT
  Age: 74 Year
  Sex: Female

DRUGS (4)
  1. ELIQUIS [Suspect]
     Active Substance: APIXABAN
     Indication: Product used for unknown indication
  2. RIFAMPIN [Interacting]
     Active Substance: RIFAMPIN
     Indication: Product used for unknown indication
  3. RIFABUTIN [Interacting]
     Active Substance: RIFABUTIN
     Indication: Product used for unknown indication
  4. VORICONAZOLE [Concomitant]
     Active Substance: VORICONAZOLE
     Indication: Product used for unknown indication

REACTIONS (1)
  - Drug interaction [Unknown]
